FAERS Safety Report 19646984 (Version 1)
Quarter: 2021Q3

REPORT INFORMATION
  Report Type: Spontaneous
  Country: US (occurrence: US)
  Receive Date: 20210802
  Receipt Date: 20210802
  Transmission Date: 20211014
  Serious: No
  Sender: FDA-Public Use
  Company Number: US-009507513-2108USA000117

PATIENT
  Age: 85 Year
  Sex: Male

DRUGS (4)
  1. CUBICIN [Suspect]
     Active Substance: DAPTOMYCIN
     Indication: ALPHA HAEMOLYTIC STREPTOCOCCAL INFECTION
  2. CUBICIN [Suspect]
     Active Substance: DAPTOMYCIN
     Indication: CLOSTRIDIAL INFECTION
  3. CUBICIN [Suspect]
     Active Substance: DAPTOMYCIN
     Indication: STREPTOCOCCAL INFECTION
  4. CUBICIN [Suspect]
     Active Substance: DAPTOMYCIN
     Indication: ENTEROCOCCAL INFECTION

REACTIONS (1)
  - Product use in unapproved indication [Unknown]
